FAERS Safety Report 19093587 (Version 7)
Quarter: 2021Q3

REPORT INFORMATION
  Report Type: Report from Study
  Country: US (occurrence: US)
  Receive Date: 20210405
  Receipt Date: 20210902
  Transmission Date: 20211014
  Serious: Yes (Other)
  Sender: FDA-Public Use
  Company Number: NVSC2021US076553

PATIENT
  Age: 72 Year
  Sex: Female

DRUGS (5)
  1. BEOVU [Suspect]
     Active Substance: BROLUCIZUMAB-DBLL
     Dosage: UNK (LEFT EYE) (RIGHT EYE) (EVERY 9 WEEKS)
     Route: 047
     Dates: start: 20210524
  2. BEOVU [Suspect]
     Active Substance: BROLUCIZUMAB-DBLL
     Indication: NEOVASCULAR AGE-RELATED MACULAR DEGENERATION
     Dosage: UNK (LEFT EYE) (RIGHT EYE) (EVERY 9 WEEKS)
     Route: 047
     Dates: start: 20201203
  3. BEOVU [Suspect]
     Active Substance: BROLUCIZUMAB-DBLL
     Dosage: UNK
     Route: 047
  4. BETADINE [Suspect]
     Active Substance: POVIDONE-IODINE
     Indication: PRODUCT USED FOR UNKNOWN INDICATION
     Dosage: UNK
     Route: 065
  5. EYLEA [Suspect]
     Active Substance: AFLIBERCEPT
     Indication: PRODUCT USED FOR UNKNOWN INDICATION
     Dosage: UNK (RIGHT EYE)
     Route: 065

REACTIONS (9)
  - Ear pain [Unknown]
  - Nephrolithiasis [Unknown]
  - Headache [Unknown]
  - Diplopia [Not Recovered/Not Resolved]
  - Giant cell arteritis [Unknown]
  - Dry eye [Unknown]
  - Pneumonia [Unknown]
  - Ear infection [Unknown]
  - Inappropriate schedule of product administration [Unknown]

NARRATIVE: CASE EVENT DATE: 20201203
